FAERS Safety Report 5899725-0 (Version None)
Quarter: 2008Q3

REPORT INFORMATION
  Report Type: 
  Country: None (occurrence: None)
  Receive Date: 20080926
  Receipt Date: 20080917
  Transmission Date: 20090109
  Serious: Yes (Hospitalization, Other)
  Sender: FDA-Public Use
  Company Number: DE-BAYER-200822192GPV

PATIENT
  Age: 45 Year
  Sex: Female
  Weight: 54 kg

DRUGS (2)
  1. MIRENA [Suspect]
     Indication: DRUG USE FOR UNKNOWN INDICATION
     Dosage: TOTAL DAILY DOSE: 20 ?G
     Route: 015
     Dates: start: 20030101, end: 20080201
  2. MIRENA [Suspect]
     Dosage: TOTAL DAILY DOSE: 20 ?G
     Route: 015
     Dates: start: 20080201

REACTIONS (2)
  - BREAST CANCER [None]
  - BREAST CANCER IN SITU [None]
